FAERS Safety Report 8602850-4 (Version None)
Quarter: 2012Q3

REPORT INFORMATION
  Report Type: 
  Country: None (occurrence: None)
  Receive Date: 20120817
  Receipt Date: 20120808
  Transmission Date: 20120928
  Serious: Yes (Congenital Anomaly)
  Sender: FDA-Public Use
  Company Number: US-VIIV HEALTHCARE LIMITED-A0982208A

PATIENT
  Sex: Male
  Weight: 3.7 kg

DRUGS (9)
  1. RETROVIR [Concomitant]
     Dosage: 1MGKH SINGLE DOSE
     Route: 064
     Dates: start: 20120525, end: 20120525
  2. FLUCONAZOLE [Concomitant]
  3. TRUVADA [Suspect]
     Indication: ANTIRETROVIRAL THERAPY
     Dosage: 1TAB PER DAY
     Route: 064
     Dates: end: 20111110
  4. COMBIVIR [Suspect]
     Indication: ANTIRETROVIRAL THERAPY
     Dosage: 2TAB PER DAY
     Route: 064
     Dates: start: 20111110, end: 20120607
  5. NORVIR [Suspect]
     Indication: ANTIRETROVIRAL THERAPY
     Dosage: 100MGD PER DAY
     Route: 064
  6. TERAZOL CREAM [Concomitant]
  7. RETROVIR [Concomitant]
     Indication: ANTIRETROVIRAL THERAPY
     Dosage: 2MGKH SINGLE DOSE
     Route: 064
     Dates: start: 20120525, end: 20120525
  8. UNSPECIFIED MEDICATION [Concomitant]
  9. REYATAZ [Suspect]
     Indication: ANTIRETROVIRAL THERAPY
     Dosage: 300MGD PER DAY
     Route: 064

REACTIONS (4)
  - FOETAL EXPOSURE DURING PREGNANCY [None]
  - PYELOCALIECTASIS [None]
  - HYDRONEPHROSIS [None]
  - CONGENITAL MEGAURETER [None]
